FAERS Safety Report 9238557 (Version 1)
Quarter: 2013Q2

REPORT INFORMATION
  Report Type: Not Available
  Country: CN (occurrence: CN)
  Receive Date: 20130418
  Receipt Date: 20130418
  Transmission Date: 20140414
  Serious: Yes (Hospitalization)
  Sender: FDA-Public Use
  Company Number: CN-ASTELLAS-2013JP005049

PATIENT
  Sex: Male

DRUGS (5)
  1. TACROLIMUS [Suspect]
     Indication: RENAL TRANSPLANT
     Dosage: 1 DF, BID
     Route: 048
     Dates: start: 20011227, end: 20121231
  2. MYCOPHENOLATE MOFETIL [Concomitant]
     Dosage: UNK
     Route: 065
     Dates: start: 20011227
  3. NEW CYSPIN [Concomitant]
     Dosage: UNK
     Route: 048
  4. SANDIMMUN NEORAL [Concomitant]
     Route: 048
  5. PREDNISONE [Concomitant]
     Dosage: UNK
     Route: 048
     Dates: start: 20011227

REACTIONS (4)
  - Blood creatinine increased [Recovering/Resolving]
  - Diabetes mellitus [Recovering/Resolving]
  - Benign prostatic hyperplasia [Recovering/Resolving]
  - Hypertension [Recovering/Resolving]
